FAERS Safety Report 8832388 (Version 2)
Quarter: 2012Q4

REPORT INFORMATION
  Report Type: 
  Country: US (occurrence: US)
  Receive Date: 20121009
  Receipt Date: 20121024
  Transmission Date: 20130627
  Serious: Yes (Other)
  Sender: FDA-Public Use
  Company Number: US-ROCHE-1061663

PATIENT
  Age: 39 None
  Sex: Female
  Weight: 68.1 kg

DRUGS (5)
  1. ACCUTANE [Suspect]
     Indication: ACNE
     Route: 065
     Dates: start: 19821202, end: 198303
  2. ACCUTANE [Suspect]
     Route: 065
     Dates: start: 199609, end: 199702
  3. ACCUTANE [Suspect]
     Route: 065
     Dates: start: 199901, end: 199902
  4. ACCUTANE [Suspect]
     Route: 065
     Dates: start: 199909, end: 199910
  5. ACCUTANE [Suspect]
     Route: 065
     Dates: start: 200001, end: 200004

REACTIONS (10)
  - Crohn^s disease [Unknown]
  - Inflammatory bowel disease [Unknown]
  - Proctitis [Unknown]
  - Depression [Unknown]
  - Mental disorder [Unknown]
  - Suicidal ideation [Unknown]
  - Irritable bowel syndrome [Unknown]
  - Hernia [Unknown]
  - Dry skin [Unknown]
  - Chapped lips [Unknown]
